FAERS Safety Report 21113346 (Version 1)
Quarter: 2022Q3

REPORT INFORMATION
  Report Type: Spontaneous
  Country: US (occurrence: None)
  Receive Date: 20220721
  Receipt Date: 20220721
  Transmission Date: 20221026
  Serious: Yes (Hospitalization)
  Sender: FDA-Public Use
  Company Number: None

PATIENT
  Sex: Female

DRUGS (13)
  1. EPOGEN [Suspect]
     Active Substance: ERYTHROPOIETIN
     Indication: Cardiac failure
     Dosage: 10000UNIT/ML ?ADMINISTER 1 ML SUBCUTANEOUS ONCE A WEEK?
     Route: 058
  2. AMLODIPINE TAB [Concomitant]
  3. CALCITRIOL CAP [Concomitant]
  4. CLONIDINE TAB [Concomitant]
  5. CLOPIODGREL TAB [Concomitant]
  6. FLUCONAZOLE TAB [Concomitant]
  7. FUROSEMIDE TAB [Concomitant]
  8. LABETALOL [Concomitant]
     Active Substance: LABETALOL\LABETALOL HYDROCHLORIDE
  9. LEVOTHYROXINE [Concomitant]
     Active Substance: LEVOTHYROXINE
  10. OZEMPIC INJ [Concomitant]
  11. PROCRIT [Concomitant]
     Active Substance: ERYTHROPOIETIN
  12. PROCRIT [Concomitant]
     Active Substance: ERYTHROPOIETIN
  13. SIMVASTATIN [Concomitant]
     Active Substance: SIMVASTATIN

REACTIONS (1)
  - Knee operation [None]
